FAERS Safety Report 7625819-5 (Version None)
Quarter: 2011Q3

REPORT INFORMATION
  Report Type: 
  Country: None (occurrence: None)
  Receive Date: 20110721
  Receipt Date: 20110713
  Transmission Date: 20111222
  Serious: Yes (Death, Other)
  Sender: FDA-Public Use
  Company Number: US-ELI_LILLY_AND_COMPANY-US201008000104

PATIENT
  Sex: Male
  Weight: 66.667 kg

DRUGS (5)
  1. EFFIENT [Suspect]
     Dosage: 10 MG, DAILY (1/D)
  2. EFFIENT [Suspect]
     Indication: PERCUTANEOUS CORONARY INTERVENTION
     Dosage: 60 MG, OTHER
     Dates: start: 20100203
  3. ASPIRIN [Concomitant]
     Dosage: 81 MG, QD
  4. CARVEDILOL [Concomitant]
     Dosage: 3.125 MG, BID
  5. SIMVASTATIN [Concomitant]
     Dosage: 20 MG, QD

REACTIONS (1)
  - VENTRICULAR FIBRILLATION [None]
